FAERS Safety Report 8889854 (Version 3)
Quarter: 2013Q1

REPORT INFORMATION
  Report Type: Spontaneous
  Country: DE (occurrence: DE)
  Receive Date: 20121107
  Receipt Date: 20130101
  Transmission Date: 20140127
  Serious: Yes (Hospitalization)
  Sender: FDA-Public Use
  Company Number: DE-BRISTOL-MYERS SQUIBB COMPANY-17078593

PATIENT
  Age: 70 Year
  Sex: Female
  Weight: 59 kg

DRUGS (5)
  1. YERVOY [Suspect]
     Indication: METASTATIC MALIGNANT MELANOMA
     Dosage: INTERRUPTED ON :25OCT12
     Route: 042
     Dates: start: 20121004
  2. MORPHINE SULPHATE [Suspect]
     Dates: start: 201210
  3. PALLADONE [Concomitant]
     Dates: start: 201210
  4. TARGIN [Concomitant]
     Dosage: 1DF= 10/5 MG-2 PER 1 D
  5. FENTANYL PATCH [Concomitant]

REACTIONS (4)
  - Metastases to liver [Unknown]
  - Hepatotoxicity [Not Recovered/Not Resolved]
  - Nausea [Not Recovered/Not Resolved]
  - Decreased appetite [Not Recovered/Not Resolved]
